FAERS Safety Report 17782518 (Version 1)
Quarter: 2020Q2

REPORT INFORMATION
  Report Type: Spontaneous
  Country: US (occurrence: US)
  Receive Date: 20200513
  Receipt Date: 20200513
  Transmission Date: 20200714
  Serious: No
  Sender: FDA-Public Use
  Company Number: US-CELGENEUS-USA-20200503243

PATIENT
  Age: 49 Year
  Sex: Female

DRUGS (2)
  1. ETODOLAC. [Concomitant]
     Active Substance: ETODOLAC
     Indication: ARTHRALGIA
     Dosage: 800 MILLIGRAM
     Route: 065
  2. OTEZLA [Suspect]
     Active Substance: APREMILAST
     Indication: PSORIATIC ARTHROPATHY
     Dosage: 60 MILLIGRAM
     Route: 048
     Dates: start: 20200331

REACTIONS (4)
  - Stress [Unknown]
  - Psoriatic arthropathy [Recovering/Resolving]
  - Abdominal discomfort [Recovering/Resolving]
  - Insomnia [Recovering/Resolving]

NARRATIVE: CASE EVENT DATE: 20200408
